FAERS Safety Report 7647049-3 (Version None)
Quarter: 2011Q3

REPORT INFORMATION
  Report Type: 
  Country: None (occurrence: None)
  Receive Date: 20110801
  Receipt Date: 20110720
  Transmission Date: 20111222
  Serious: Yes (Life-Threatening, Hospitalization)
  Sender: FDA-Public Use
  Company Number: JP-JNJFOC-20110701438

PATIENT
  Sex: Male

DRUGS (10)
  1. PENTASA [Suspect]
     Indication: CROHN'S DISEASE
     Route: 048
     Dates: start: 20000805
  2. NIZATIDINE [Concomitant]
     Indication: CROHN'S DISEASE
     Route: 048
  3. ZOLPIDEM [Concomitant]
     Indication: INSOMNIA
     Route: 048
     Dates: end: 20110610
  4. REMICADE [Suspect]
     Indication: CROHN'S DISEASE
     Route: 042
     Dates: start: 20060110
  5. PENTASA [Suspect]
     Route: 048
     Dates: start: 20060110, end: 20110627
  6. POSTERISAN [Concomitant]
     Indication: CROHN'S DISEASE
     Dosage: ROUTE OF ADMINISTRATION ^OD^
  7. DORAL [Concomitant]
     Indication: INSOMNIA
     Route: 048
     Dates: start: 20110407, end: 20110610
  8. NEOPHAGEN C [Concomitant]
     Indication: LIVER DISORDER
     Route: 042
     Dates: start: 20110610, end: 20110610
  9. REMICADE [Suspect]
     Route: 042
     Dates: start: 20110602
  10. IMURAN [Suspect]
     Indication: CROHN'S DISEASE
     Route: 048
     Dates: start: 20051228, end: 20101129

REACTIONS (2)
  - LYMPHOMA [None]
  - PYREXIA [None]
